FAERS Safety Report 16831831 (Version 1)
Quarter: 2019Q3

REPORT INFORMATION
  Report Type: Spontaneous
  Country: AU (occurrence: AU)
  Receive Date: 20190920
  Receipt Date: 20190920
  Transmission Date: 20191005
  Serious: Yes (Other)
  Sender: FDA-Public Use
  Company Number: AU-ROCHE-2405972

PATIENT
  Age: 37 Year
  Sex: Female

DRUGS (10)
  1. LATUDA [Concomitant]
     Active Substance: LURASIDONE HYDROCHLORIDE
  2. SEROQUEL [Concomitant]
     Active Substance: QUETIAPINE FUMARATE
  3. CLOMIPRAMINE HYDROCHLORIDE. [Concomitant]
     Active Substance: CLOMIPRAMINE HYDROCHLORIDE
  4. ZYPREXA [Concomitant]
     Active Substance: OLANZAPINE
  5. RISPERDAL [Concomitant]
     Active Substance: RISPERIDONE
  6. RIVOTRIL [Suspect]
     Active Substance: CLONAZEPAM
     Indication: PRODUCT USED FOR UNKNOWN INDICATION
     Route: 065
  7. LAMOTRIGINE. [Concomitant]
     Active Substance: LAMOTRIGINE
     Route: 065
  8. ABILIFY [Concomitant]
     Active Substance: ARIPIPRAZOLE
  9. EPILIM [Concomitant]
     Active Substance: VALPROATE SODIUM
  10. HALOPERIDOL. [Concomitant]
     Active Substance: HALOPERIDOL

REACTIONS (7)
  - Leukopenia [Unknown]
  - Neutropenia [Unknown]
  - Obsessive-compulsive disorder [Unknown]
  - Rash [Unknown]
  - Iron deficiency [Unknown]
  - Tic [Unknown]
  - Oedema peripheral [Unknown]
